FAERS Safety Report 13874083 (Version 2)
Quarter: 2017Q4

REPORT INFORMATION
  Report Type: Spontaneous
  Country: CH (occurrence: CH)
  Receive Date: 20170816
  Receipt Date: 20171116
  Transmission Date: 20180320
  Serious: Yes (Death)
  Sender: FDA-Public Use
  Company Number: CH-BAYER-2017-154943

PATIENT
  Age: 43 Year
  Sex: Male

DRUGS (1)
  1. STIVARGA [Suspect]
     Active Substance: REGORAFENIB
     Indication: SMALL INTESTINE ADENOCARCINOMA
     Dosage: UNK
     Dates: start: 20160808, end: 20161109

REACTIONS (1)
  - Death [Fatal]

NARRATIVE: CASE EVENT DATE: 20170720
